FAERS Safety Report 4811838-0 (Version None)
Quarter: 2005Q4

REPORT INFORMATION
  Report Type: 
  Country: None (occurrence: None)
  Receive Date: 20051028
  Receipt Date: 20041005
  Transmission Date: 20060501
  Serious: No
  Sender: FDA-Public Use
  Company Number: US-GLAXOSMITHKLINE-A0528544A

PATIENT
  Age: 76 Year
  Sex: Female

DRUGS (7)
  1. ADVAIR DISKUS 100/50 [Suspect]
     Indication: ASTHMA
     Dosage: 1PUFF TWICE PER DAY
     Route: 055
     Dates: start: 20040913, end: 20040915
  2. PLAVIX [Concomitant]
  3. NEURONTIN [Concomitant]
  4. HYDROCODONE [Concomitant]
  5. ASPIRIN [Concomitant]
  6. VITAMINS [Concomitant]
  7. ACETAMINOPHEN [Concomitant]

REACTIONS (2)
  - THROAT IRRITATION [None]
  - URTICARIA [None]
